FAERS Safety Report 9835596 (Version 1)
Quarter: 2014Q1

REPORT INFORMATION
  Report Type: Report from Study
  Country: GB (occurrence: GB)
  Receive Date: 20140122
  Receipt Date: 20140122
  Transmission Date: 20141002
  Serious: Yes (Death)
  Sender: FDA-Public Use
  Company Number: GB-PFIZER INC-2014017898

PATIENT
  Age: 66 Year
  Sex: Male
  Weight: 158 kg

DRUGS (1)
  1. ARTHROTEC [Suspect]
     Indication: OSTEOARTHRITIS
     Dosage: 75 MG, UNK
     Route: 048
     Dates: start: 20060307

REACTIONS (1)
  - Sudden death [Fatal]
